FAERS Safety Report 25845648 (Version 2)
Quarter: 2025Q3

REPORT INFORMATION
  Report Type: Spontaneous
  Country: US (occurrence: US)
  Receive Date: 20250925
  Receipt Date: 20250925
  Transmission Date: 20251020
  Serious: Yes (Hospitalization)
  Sender: CSL BEHRING
  Company Number: US-Vifor (International) Inc.-VIT-2024-10892

PATIENT
  Age: 69 Year
  Sex: Male

DRUGS (1)
  1. SUCROFERRIC OXYHYDROXIDE [Suspect]
     Active Substance: SUCROFERRIC OXYHYDROXIDE
     Route: 048

REACTIONS (6)
  - Nausea [Recovering/Resolving]
  - Vomiting [Recovering/Resolving]
  - Decreased appetite [Recovering/Resolving]
  - Computerised tomogram abdomen abnormal [Recovered/Resolved]
  - Product residue present [Recovered/Resolved]
  - Wrong technique in product usage process [Unknown]
